FAERS Safety Report 7437499-2 (Version None)
Quarter: 2011Q2

REPORT INFORMATION
  Report Type: 
  Country: None (occurrence: None)
  Receive Date: 20110426
  Receipt Date: 20110419
  Transmission Date: 20111010
  Serious: Yes (Hospitalization)
  Sender: FDA-Public Use
  Company Number: GXKR2011DE01523

PATIENT
  Age: 74 Year
  Sex: Female
  Weight: 73 kg

DRUGS (13)
  1. OMEPRAZOLE [Suspect]
     Indication: PROPHYLAXIS AGAINST GASTROINTESTINAL ULCER
     Dosage: 40 MG, QD, FOR SEVERAL YEARS, PAUSE ON 19, 24 AND 25 JAN 2010
     Route: 048
     Dates: end: 20100203
  2. VOMEX A [Concomitant]
     Indication: PROCEDURAL NAUSEA
     Dosage: 1 DF, QD
     Route: 042
     Dates: start: 20100120, end: 20100120
  3. PANTOPRAZOLE [Concomitant]
     Indication: PROPHYLAXIS AGAINST GASTROINTESTINAL ULCER
     Dosage: 40 MG, QD
     Route: 048
     Dates: start: 20100123, end: 20100125
  4. HUMAN RED BLOOD CELLS [Concomitant]
     Dosage: 1 DF, BID
     Route: 042
     Dates: start: 20100120, end: 20100120
  5. BERLOSIN [Concomitant]
     Indication: PAIN
     Dosage: 3 G, QD
     Route: 042
     Dates: start: 20100120, end: 20100120
  6. PANTOZOL [Interacting]
     Indication: PROPHYLAXIS AGAINST GASTROINTESTINAL ULCER
     Dosage: 40 MG, QD
     Route: 042
     Dates: start: 20100120, end: 20100120
  7. ZOFRAN [Concomitant]
     Indication: PROCEDURAL NAUSEA
     Dosage: 2 DF, QD
     Route: 042
     Dates: start: 20100120, end: 20100120
  8. DORMO-PUREN [Concomitant]
     Indication: INSOMNIA
     Dosage: 1 DF, QD
     Route: 048
     Dates: start: 20100121, end: 20100121
  9. ARCOXIA [Concomitant]
     Indication: PAIN
     Dosage: 90 MG, QD
     Route: 048
     Dates: start: 20100120, end: 20100123
  10. PRADAXA [Interacting]
     Dosage: 220 MG, QD
     Route: 048
     Dates: start: 20100121, end: 20100122
  11. DIPIDOLOR [Concomitant]
     Indication: PAIN
     Dosage: 7.5 MG, QD
     Route: 058
     Dates: start: 20100120, end: 20100120
  12. TRAMAL LONG [Concomitant]
     Indication: PAIN
     Dosage: 1 DF, QD
     Route: 048
     Dates: start: 20100121, end: 20100121
  13. PRADAXA [Interacting]
     Indication: THROMBOSIS PROPHYLAXIS
     Dosage: 110 MG, QD
     Route: 048
     Dates: start: 20100120, end: 20100120

REACTIONS (4)
  - TACHYCARDIA [None]
  - DYSPNOEA [None]
  - DRUG INTERACTION [None]
  - PULMONARY EMBOLISM [None]
